FAERS Safety Report 9314582 (Version 1)
Quarter: 2013Q2

REPORT INFORMATION
  Report Type: Spontaneous
  Country: IL (occurrence: IL)
  Receive Date: 20130529
  Receipt Date: 20130529
  Transmission Date: 20140414
  Serious: Yes (Other)
  Sender: FDA-Public Use
  Company Number: IL-PFIZER INC-2013154823

PATIENT
  Age: 4 Year
  Sex: Male
  Weight: 14 kg

DRUGS (1)
  1. GENOTROPIN [Suspect]
     Dosage: 0.6 UNK, 1X/DAY

REACTIONS (2)
  - Pyrexia [Recovered/Resolved]
  - Diarrhoea [Recovering/Resolving]
